FAERS Safety Report 5610769-6 (Version None)
Quarter: 2008Q1

REPORT INFORMATION
  Report Type: 
  Country: None (occurrence: None)
  Receive Date: 20080201
  Receipt Date: 20071122
  Transmission Date: 20080703
  Serious: Yes (Hospitalization)
  Sender: FDA-Public Use
  Company Number: US-BRISTOL-MYERS SQUIBB COMPANY-13933155

PATIENT
  Age: 81 Year
  Sex: Female
  Weight: 61 kg

DRUGS (11)
  1. COUMADIN [Suspect]
  2. PLAVIX [Suspect]
     Route: 048
     Dates: start: 20020101
  3. ALEVE [Suspect]
     Indication: BACK PAIN
     Route: 048
     Dates: start: 20020101
  4. SYNTHROID [Concomitant]
  5. LANOXIN [Concomitant]
  6. FOLIC ACID [Concomitant]
  7. PREDNISONE TAB [Concomitant]
  8. CALTRATE + D [Concomitant]
  9. LIPITOR [Concomitant]
  10. CALAN [Concomitant]
  11. VALIUM [Concomitant]

REACTIONS (4)
  - ABDOMINAL PAIN UPPER [None]
  - BLOOD URINE PRESENT [None]
  - DIVERTICULITIS [None]
  - GASTRIC HAEMORRHAGE [None]
